FAERS Safety Report 7543021-2 (Version None)
Quarter: 2011Q2

REPORT INFORMATION
  Report Type: 
  Country: None (occurrence: None)
  Receive Date: 20110613
  Receipt Date: 20110607
  Transmission Date: 20111010
  Serious: Yes (Death, Other)
  Sender: FDA-Public Use
  Company Number: PHHY2011TH50035

PATIENT

DRUGS (7)
  1. LEVOFLOXACIN [Suspect]
     Dosage: UNK
     Dates: start: 20110510
  2. CEFTRIAXONE [Concomitant]
  3. CEPHALOSPORINES [Concomitant]
  4. OLMESARTAN MEDOXOMIL AND HYDROCHLOROTHIZIDE [Concomitant]
     Dosage: UNK
     Dates: start: 20110510
  5. VOLTAREN [Suspect]
     Indication: PAIN
     Dosage: 75 MG/ 3 ML WHICH WAS DILUTED WITH SOLVENT TO 100 ML
     Route: 042
     Dates: start: 20110511
  6. ACETYLCYSTEINE [Concomitant]
     Dosage: UNK
     Dates: start: 20110510
  7. BROMHEXINE [Concomitant]
     Dosage: UNK
     Dates: start: 20110510

REACTIONS (5)
  - ASPIRATION [None]
  - MENINGITIS [None]
  - CONVULSION [None]
  - BLOOD PRESSURE DECREASED [None]
  - ERYTHEMA [None]
